FAERS Safety Report 6603600-3 (Version None)
Quarter: 2010Q1

REPORT INFORMATION
  Report Type: 
  Country: None (occurrence: None)
  Receive Date: 20100226
  Receipt Date: 20091107
  Transmission Date: 20100710
  Serious: No
  Sender: FDA-Public Use
  Company Number: A0816787A

PATIENT
  Sex: Male

DRUGS (1)
  1. VALTREX [Suspect]
     Dosage: 1G PER DAY
     Route: 065

REACTIONS (3)
  - HYPERSENSITIVITY [None]
  - ILL-DEFINED DISORDER [None]
  - RASH [None]
